FAERS Safety Report 16060708 (Version 1)
Quarter: 2019Q1

REPORT INFORMATION
  Report Type: Spontaneous
  Country: US (occurrence: US)
  Receive Date: 20190312
  Receipt Date: 20190312
  Transmission Date: 20190418
  Serious: No
  Sender: FDA-Public Use
  Company Number: US-ASTRAZENECA-2019SE34594

PATIENT
  Age: 32420 Day
  Sex: Female
  Weight: 86.2 kg

DRUGS (17)
  1. ALDACTONE [Concomitant]
     Active Substance: SPIRONOLACTONE
  2. ISOSORBIDE. [Concomitant]
     Active Substance: ISOSORBIDE
  3. SIMVASTATIN. [Concomitant]
     Active Substance: SIMVASTATIN
  4. TRAMADOL. [Concomitant]
     Active Substance: TRAMADOL
  5. COSOPT [Concomitant]
     Active Substance: DORZOLAMIDE HYDROCHLORIDE\TIMOLOL MALEATE
  6. HCTZ [Concomitant]
     Active Substance: HYDROCHLOROTHIAZIDE
     Dosage: 25.0MG UNKNOWN
  7. IBUPROFEN. [Concomitant]
     Active Substance: IBUPROFEN
  8. MEPERIDINE [Concomitant]
     Active Substance: MEPERIDINE
  9. ZYRTEC [Concomitant]
     Active Substance: CETIRIZINE HYDROCHLORIDE
     Indication: HYPERSENSITIVITY
  10. OMEPRAZOLE. [Suspect]
     Active Substance: OMEPRAZOLE
     Route: 048
  11. FARXIGA [Suspect]
     Active Substance: DAPAGLIFLOZIN PROPANEDIOL
     Indication: GLYCOSYLATED HAEMOGLOBIN
     Route: 048
     Dates: start: 20181201, end: 20190106
  12. VITAMIN D2 [Concomitant]
     Active Substance: ERGOCALCIFEROL
  13. ACETYLSALICYLIC ACID [Concomitant]
     Active Substance: ASPIRIN
  14. LANTUS [Concomitant]
     Active Substance: INSULIN GLARGINE
     Dosage: 35[IU]/ML TWO TIMES A DAY
  15. SERTRALINE [Concomitant]
     Active Substance: SERTRALINE HYDROCHLORIDE
  16. LEVOX [Concomitant]
     Active Substance: LEVOFLOXACIN
  17. ALPHAGAN P [Concomitant]
     Active Substance: BRIMONIDINE TARTRATE
     Indication: GLAUCOMA

REACTIONS (23)
  - Rash [Recovering/Resolving]
  - Hyperhidrosis [Recovered/Resolved]
  - Dizziness [Recovered/Resolved]
  - Fungal infection [Not Recovered/Not Resolved]
  - Feeling jittery [Recovering/Resolving]
  - Hunger [Recovered/Resolved]
  - Ill-defined disorder [Recovered/Resolved]
  - Glucose urine present [Unknown]
  - Loss of personal independence in daily activities [Unknown]
  - Confusional state [Recovered/Resolved]
  - Rhinorrhoea [Recovered/Resolved]
  - Irritability [Recovering/Resolving]
  - Glycosylated haemoglobin increased [Unknown]
  - Somnolence [Recovered/Resolved]
  - Vomiting [Recovered/Resolved]
  - Hypoglycaemia [Recovered/Resolved]
  - Pollakiuria [Not Recovered/Not Resolved]
  - Tremor [Recovering/Resolving]
  - Asthenia [Recovered/Resolved]
  - Oropharyngeal pain [Recovered/Resolved]
  - Heart rate increased [Recovered/Resolved]
  - Nausea [Recovered/Resolved]
  - Headache [Recovered/Resolved]

NARRATIVE: CASE EVENT DATE: 20181215
